FAERS Safety Report 10239073 (Version 1)
Quarter: 2014Q2

REPORT INFORMATION
  Report Type: Spontaneous
  Country: US (occurrence: None)
  Receive Date: 20140613
  Receipt Date: 20140613
  Transmission Date: 20141212
  Serious: No
  Sender: FDA-Public Use
  Company Number: None

PATIENT
  Age: 62 Year
  Sex: Female
  Weight: 77.11 kg

DRUGS (1)
  1. INVOKANA [Suspect]
     Indication: TYPE 2 DIABETES MELLITUS
     Dosage: 1 TABLET ONCE DAILY
     Dates: start: 20140301, end: 20140513

REACTIONS (25)
  - Glossodynia [None]
  - Oesophageal irritation [None]
  - Anxiety [None]
  - Dehydration [None]
  - Dizziness [None]
  - Arrhythmia [None]
  - Dyspnoea [None]
  - Tremor [None]
  - Myalgia [None]
  - Muscle spasms [None]
  - Feeling abnormal [None]
  - Nausea [None]
  - Feeling abnormal [None]
  - Dizziness [None]
  - Vomiting [None]
  - Feeling abnormal [None]
  - Paraesthesia [None]
  - Malaise [None]
  - Insomnia [None]
  - Drug withdrawal syndrome [None]
  - Impaired work ability [None]
  - Impaired driving ability [None]
  - Activities of daily living impaired [None]
  - Fatigue [None]
  - Epigastric discomfort [None]
